FAERS Safety Report 5793452-6 (Version None)
Quarter: 2008Q2

REPORT INFORMATION
  Report Type: 
  Country: None (occurrence: None)
  Receive Date: 20080627
  Receipt Date: 20080618
  Transmission Date: 20081010
  Serious: Yes (Hospitalization, Other)
  Sender: FDA-Public Use
  Company Number: US-MERCK-0711USA01299

PATIENT
  Age: 68 Year
  Sex: Female
  Weight: 59 kg

DRUGS (2)
  1. FOSAMAX [Suspect]
     Indication: OSTEOPOROSIS
     Route: 048
     Dates: start: 20030101, end: 20060101
  2. FOSAMAX [Suspect]
     Indication: OSTEOPENIA
     Route: 048
     Dates: start: 20030101, end: 20060101

REACTIONS (15)
  - ABSCESS [None]
  - DENTAL ALVEOLAR ANOMALY [None]
  - ESSENTIAL HYPERTENSION [None]
  - FIBROUS DYSPLASIA OF BONE [None]
  - FISTULA DISCHARGE [None]
  - HYPERTENSION [None]
  - INTERMITTENT CLAUDICATION [None]
  - IRON DEFICIENCY ANAEMIA [None]
  - ODONTOGENIC CYST [None]
  - ORAL DISORDER [None]
  - ORAL INFECTION [None]
  - OSTEONECROSIS [None]
  - PARAESTHESIA ORAL [None]
  - PERIOSTITIS [None]
  - SEASONAL ALLERGY [None]
